FAERS Safety Report 4488145-1 (Version None)
Quarter: 2004Q4

REPORT INFORMATION
  Report Type: 
  Country: None (occurrence: None)
  Receive Date: 20041028
  Receipt Date: 20041019
  Transmission Date: 20050328
  Serious: Yes (Hospitalization, Other)
  Sender: FDA-Public Use
  Company Number: CA-JNJFOC-20041005317

PATIENT
  Age: 26 Year
  Sex: Female

DRUGS (8)
  1. TOPAMAX [Suspect]
     Dosage: DOSE STARTED ON DAY 39 POSTHOSPITALIZATION.
  2. TOPAMAX [Suspect]
     Dosage: DOSE STARTED ON DAY 32 POSTHOSPITALIZATION.
  3. TOPAMAX [Suspect]
     Indication: BIPOLAR DISORDER
  4. LITHIUM [Interacting]
     Dosage: DOSE STARTED ON DAY 19 POSTHOSPITALIZATION.
  5. LITHIUM [Interacting]
     Dosage: DOSE STARTED ON DAY 8 POSTHOSPITALIZATION.
  6. LITHIUM [Interacting]
     Indication: BIPOLAR DISORDER
  7. VALPROATE [Concomitant]
  8. CLONAZEPAM [Concomitant]

REACTIONS (7)
  - ANTIPSYCHOTIC DRUG LEVEL ABOVE THERAPEUTIC [None]
  - CONFUSIONAL STATE [None]
  - DISTURBANCE IN ATTENTION [None]
  - DRUG TOXICITY [None]
  - LETHARGY [None]
  - MANIA [None]
  - MENTAL DISORDER [None]
